FAERS Safety Report 8381092-4 (Version None)
Quarter: 2012Q2

REPORT INFORMATION
  Report Type: 
  Country: None (occurrence: None)
  Receive Date: 20120523
  Receipt Date: 20120516
  Transmission Date: 20120825
  Serious: Yes (Other)
  Sender: FDA-Public Use
  Company Number: NL-ABBOTT-12P-114-0936053-00

PATIENT
  Sex: Male
  Weight: 70 kg

DRUGS (7)
  1. ASPIRIN [Concomitant]
     Indication: ANTICOAGULANT THERAPY
     Route: 048
     Dates: start: 20120301
  2. ISOSORBIDEMONONITRAAT [Concomitant]
     Indication: ANGINA PECTORIS
     Route: 048
     Dates: start: 20120301
  3. SIMVASTATIN [Concomitant]
     Indication: HYPERCHOLESTEROLAEMIA
     Route: 048
     Dates: start: 20120301
  4. NIFEDIPINE [Concomitant]
     Indication: ANGINA PECTORIS
     Route: 048
     Dates: start: 20120301
  5. TAMSULOSIN HCL [Concomitant]
     Indication: URINARY RETENTION
     Route: 048
  6. LEUPROLIDE ACETATE [Suspect]
     Indication: PROSTATE CANCER
     Route: 058
     Dates: start: 20100101
  7. BUDESONIDE/FORMOTEROL [Concomitant]
     Indication: PRODUCT USED FOR UNKNOWN INDICATION
     Dosage: 200/6UG/DO 120 DO TURB
     Route: 055

REACTIONS (4)
  - CARDIAC DISORDER [None]
  - INJECTION SITE PAIN [None]
  - HYPERTENSION [None]
  - HYPERCHOLESTEROLAEMIA [None]
